FAERS Safety Report 16569371 (Version 1)
Quarter: 2019Q3

REPORT INFORMATION
  Report Type: Spontaneous
  Country: FR (occurrence: FR)
  Receive Date: 20190715
  Receipt Date: 20190715
  Transmission Date: 20191004
  Serious: Yes (Life-Threatening)
  Sender: FDA-Public Use
  Company Number: FR-ASTRAZENECA-2019SE99320

PATIENT
  Age: 75 Year
  Sex: Male
  Weight: 87 kg

DRUGS (3)
  1. QUETIAPINE FUMARATE. [Suspect]
     Active Substance: QUETIAPINE FUMARATE
     Dosage: 3.0G UNKNOWN
     Route: 048
     Dates: start: 20190413, end: 20190413
  2. GABAPENTIN. [Suspect]
     Active Substance: GABAPENTIN
     Dosage: 9.0G UNKNOWN
     Route: 048
     Dates: start: 20190413, end: 20190413
  3. TERALITHE [Suspect]
     Active Substance: LITHIUM CARBONATE
     Dosage: 4.0G UNKNOWN
     Route: 048
     Dates: start: 20190413, end: 20190413

REACTIONS (3)
  - Poisoning deliberate [Recovered/Resolved]
  - Acute kidney injury [Recovered/Resolved]
  - Coma [Recovered/Resolved]

NARRATIVE: CASE EVENT DATE: 20190413
